FAERS Safety Report 20776180 (Version 2)
Quarter: 2022Q3

REPORT INFORMATION
  Report Type: Report from Study
  Country: US (occurrence: None)
  Receive Date: 20220502
  Receipt Date: 20220824
  Transmission Date: 20221027
  Serious: Yes (Hospitalization)
  Sender: FDA-Public Use
  Company Number: US-Eisai Medical Research-EC-2022-113930

PATIENT
  Age: 60 Year
  Sex: Male

DRUGS (3)
  1. LENVIMA [Suspect]
     Active Substance: LENVATINIB
     Indication: Renal cancer
     Route: 048
     Dates: start: 20220308, end: 202203
  2. LENVIMA [Suspect]
     Active Substance: LENVATINIB
     Indication: Lung neoplasm malignant
     Route: 048
     Dates: start: 20220415
  3. LENVIMA [Suspect]
     Active Substance: LENVATINIB
     Indication: Metastases to bone

REACTIONS (4)
  - Vomiting [Recovering/Resolving]
  - Dehydration [Unknown]
  - Fatigue [Recovering/Resolving]
  - Stomatitis [Not Recovered/Not Resolved]

NARRATIVE: CASE EVENT DATE: 20220318
